FAERS Safety Report 8507117-0 (Version None)
Quarter: 2012Q3

REPORT INFORMATION
  Report Type: 
  Country: None (occurrence: None)
  Receive Date: 20120703
  Receipt Date: 20120626
  Transmission Date: 20120928
  Serious: Yes (Death)
  Sender: FDA-Public Use
  Company Number: DSA_58202_2012

PATIENT
  Sex: Male

DRUGS (1)
  1. XENAZINE [Suspect]
     Indication: DEATH
     Dosage: (12.5 MG BID ORAL)
     Route: 048
     Dates: start: 20101202

REACTIONS (1)
  - DEATH [None]
